FAERS Safety Report 6537461-8 (Version None)
Quarter: 2010Q1

REPORT INFORMATION
  Report Type: 
  Country: None (occurrence: None)
  Receive Date: 20100110
  Receipt Date: 20091229
  Transmission Date: 20100710
  Serious: Yes (Life-Threatening, Other)
  Sender: FDA-Public Use
  Company Number: DSA_42294_2010

PATIENT
  Sex: Female

DRUGS (24)
  1. DILTIAZEM HCL [Suspect]
     Indication: ATRIAL FIBRILLATION
     Dosage: (120 MG QD ORAL)
     Route: 048
     Dates: start: 20091208, end: 20091211
  2. DILTIAZEM HCL [Suspect]
     Indication: ATRIAL FLUTTER
     Dosage: (120 MG QD ORAL)
     Route: 048
     Dates: start: 20091208, end: 20091211
  3. PRIMPERAN INJ [Suspect]
     Indication: DRUG USE FOR UNKNOWN INDICATION
     Dosage: (10 MG QD ORAL)
     Route: 048
     Dates: start: 20091106, end: 20091212
  4. CORDARONE [Suspect]
     Indication: ATRIAL FIBRILLATION
     Dosage: (200 MG QD ORAL)
     Route: 048
     Dates: start: 20091105, end: 20091212
  5. CORDARONE [Suspect]
     Indication: ATRIAL FLUTTER
     Dosage: (200 MG QD ORAL)
     Route: 048
     Dates: start: 20091105, end: 20091212
  6. METHADONE HCL [Suspect]
     Indication: ABNORMAL BEHAVIOUR
     Dosage: (20 MG QD ORAL)
     Route: 048
     Dates: end: 20091212
  7. METHADONE HCL [Suspect]
     Indication: MENTAL DISORDER
     Dosage: (20 MG QD ORAL)
     Route: 048
     Dates: end: 20091212
  8. EFFEXOR [Suspect]
     Indication: DEPRESSION
     Dosage: (150 MG QD ORAL)
     Route: 048
     Dates: end: 20091212
  9. CONCOR (CONCOR-BISOPROLOL FUMARATE) [Suspect]
     Indication: VENTRICULAR ARRHYTHMIA
     Dosage: (2.5 MG QD ORAL)
     Route: 048
     Dates: start: 20091203, end: 20091212
  10. LISINOPRIL [Concomitant]
  11. TORASEMIDE [Concomitant]
  12. STILNOX [Concomitant]
  13. ENOXAPARIN SODIUM [Concomitant]
  14. FLOXAPEN [Concomitant]
  15. TRANXILIUM [Concomitant]
  16. PANTOPRAZOLE [Concomitant]
  17. RIMACTANE [Concomitant]
  18. ALDACTONE [Concomitant]
  19. COMILORID [Concomitant]
  20. NICORETTE [Concomitant]
  21. POTASSIUM CHLORIDE [Concomitant]
  22. FLUTICASONE W/SALMETEROL [Concomitant]
  23. SUPRADYN [Concomitant]
  24. ASCORBIC ACID W/FERROUS FUMARATE [Concomitant]

REACTIONS (5)
  - BRADYCARDIA [None]
  - CARDIAC ARREST [None]
  - DRUG INTERACTION [None]
  - HYPOKALAEMIA [None]
  - VENTRICULAR FIBRILLATION [None]
